FAERS Safety Report 23392362 (Version 2)
Quarter: 2024Q1

REPORT INFORMATION
  Report Type: Spontaneous
  Country: US (occurrence: US)
  Receive Date: 20240111
  Receipt Date: 20240119
  Transmission Date: 20240410
  Serious: No
  Sender: FDA-Public Use
  Company Number: US-TAKEDA-2024TUS002636

PATIENT
  Sex: Male
  Weight: 72 kg

DRUGS (2)
  1. FOSRENOL [Suspect]
     Active Substance: LANTHANUM CARBONATE
     Indication: Hyperphosphataemia
     Dosage: 1000 MILLIGRAM, QID
     Route: 065
  2. FOSRENOL [Suspect]
     Active Substance: LANTHANUM CARBONATE
     Dosage: UNK
     Route: 048
     Dates: start: 202311

REACTIONS (3)
  - Product use complaint [Unknown]
  - Wrong technique in product usage process [Unknown]
  - No adverse event [Unknown]
